FAERS Safety Report 8781177 (Version 3)
Quarter: 2015Q1

REPORT INFORMATION
  Report Type: Report from Study
  Country: US (occurrence: US)
  Receive Date: 20120913
  Receipt Date: 20150327
  Transmission Date: 20150721
  Serious: Yes (Death)
  Sender: FDA-Public Use
  Company Number: US-ROCHE-1125492

PATIENT
  Age: 47 Year
  Sex: Male
  Weight: 72 kg

DRUGS (9)
  1. LISINOPRIL. [Concomitant]
     Active Substance: LISINOPRIL
     Route: 065
     Dates: start: 20111118
  2. AVASTIN [Suspect]
     Active Substance: BEVACIZUMAB
     Dosage: RECEIVED SAME DOSE 730 MG ON 06/DEC/2011
     Route: 042
     Dates: start: 20111122
  3. AVASTIN [Suspect]
     Active Substance: BEVACIZUMAB
     Indication: GLIOBLASTOMA MULTIFORME
     Dosage: RECEIVED SAME DOSES 727 MG ON 05/OCT/2011 AND 19/OCT/2011
     Route: 042
     Dates: start: 20110920
  4. AVASTIN [Suspect]
     Active Substance: BEVACIZUMAB
     Dosage: SAME DOSE RECEIVED ON 28/FEB/2012
     Route: 042
     Dates: start: 20120209
  5. AVASTIN [Suspect]
     Active Substance: BEVACIZUMAB
     Dosage: SAME DOSES RECEIVED ON 20/DEC/2011, 03/JAN/2012 AND 19/JAN/2012.
     Route: 042
     Dates: start: 20111104
  6. AVASTIN [Suspect]
     Active Substance: BEVACIZUMAB
     Route: 042
     Dates: start: 20120202
  7. ATENOLOL. [Concomitant]
     Active Substance: ATENOLOL
  8. AVASTIN [Suspect]
     Active Substance: BEVACIZUMAB
     Route: 042
  9. AVASTIN [Suspect]
     Active Substance: BEVACIZUMAB
     Route: 042
     Dates: start: 20120228

REACTIONS (18)
  - Pain [Unknown]
  - Dry skin [Unknown]
  - Hemiparesis [Unknown]
  - Disorientation [Unknown]
  - Headache [Unknown]
  - Tumour excision [Unknown]
  - Balance disorder [Unknown]
  - Paraesthesia [Unknown]
  - Arthropathy [Unknown]
  - Gait disturbance [Unknown]
  - Dizziness [Unknown]
  - Hypersomnia [Unknown]
  - Fatigue [Unknown]
  - Hypoaesthesia [Unknown]
  - Nausea [Unknown]
  - Decreased appetite [Unknown]
  - Blood pressure increased [Unknown]
  - Glioblastoma multiforme [Fatal]

NARRATIVE: CASE EVENT DATE: 20120513
